FAERS Safety Report 8343389-3 (Version None)
Quarter: 2012Q1

REPORT INFORMATION
  Report Type: 
  Country: None (occurrence: None)
  Receive Date: 20120330
  Receipt Date: 20120105
  Transmission Date: 20120608
  Serious: Yes (Hospitalization)
  Sender: FDA-Public Use
  Company Number: PHEH2011US011861

PATIENT
  Age: 82 Year
  Sex: Male

DRUGS (8)
  1. PROMETHAZINE [Concomitant]
  2. SYNTHROID [Concomitant]
  3. EXELON [Suspect]
     Dosage: TRANSDERMAL, 9.5 MG/24 HOURS, TRANSDERMAL
     Route: 062
  4. FLUDROCORTISONE ACETATE [Concomitant]
  5. ASPIRIN [Concomitant]
  6. FISH OIL (FISH OIL) [Concomitant]
  7. SIMVASTATIN [Concomitant]
  8. VITAMINS (ASCORBIC ACID, ERGOCALCIFEROL, NICOTINAMIDE, RETINOL, RIBOFL [Concomitant]

REACTIONS (5)
  - NAUSEA [None]
  - CONVULSION [None]
  - SYNCOPE [None]
  - DIZZINESS [None]
  - LETHARGY [None]
